FAERS Safety Report 25310844 (Version 1)
Quarter: 2025Q2

REPORT INFORMATION
  Report Type: Spontaneous
  Country: KR (occurrence: KR)
  Receive Date: 20250514
  Receipt Date: 20250514
  Transmission Date: 20250716
  Serious: Yes (Death, Other)
  Sender: UNITED THERAPEUTICS
  Company Number: KR-UNITED THERAPEUTICS-UNT-2025-016348

PATIENT
  Age: 53 Year
  Sex: Female

DRUGS (2)
  1. REMODULIN [Suspect]
     Active Substance: TREPROSTINIL
     Indication: Pulmonary arterial hypertension
  2. REMODULIN [Suspect]
     Active Substance: TREPROSTINIL
     Dates: start: 20250425, end: 20250511

REACTIONS (3)
  - Post procedural sepsis [Fatal]
  - Renal failure [Unknown]
  - Post procedural infection [Unknown]

NARRATIVE: CASE EVENT DATE: 20250505
